FAERS Safety Report 13338691 (Version 1)
Quarter: 2017Q1

REPORT INFORMATION
  Report Type: Spontaneous
  Country: US (occurrence: US)
  Receive Date: 20170315
  Receipt Date: 20170315
  Transmission Date: 20170428
  Serious: Yes (Other)
  Sender: FDA-Public Use
  Company Number: US-ELI_LILLY_AND_COMPANY-US201703003961

PATIENT
  Sex: Female

DRUGS (4)
  1. INSULIN, ANIMAL [Suspect]
     Active Substance: INSULIN NOS
     Indication: GESTATIONAL DIABETES
     Dosage: UNK, UNKNOWN
     Route: 065
     Dates: start: 1989
  2. INVOKANA [Concomitant]
     Active Substance: CANAGLIFLOZIN
  3. ASPIRIN                            /00002701/ [Concomitant]
     Active Substance: ASPIRIN
  4. ADVIL (MEFENAMIC ACID) [Concomitant]
     Active Substance: MEFENAMIC ACID

REACTIONS (4)
  - Complication of pregnancy [Unknown]
  - Diabetes mellitus inadequate control [Unknown]
  - Maternal exposure during pregnancy [Recovered/Resolved]
  - Labour complication [Unknown]

NARRATIVE: CASE EVENT DATE: 198905
